FAERS Safety Report 6731092-2 (Version None)
Quarter: 2010Q2

REPORT INFORMATION
  Report Type: 
  Country: None (occurrence: None)
  Receive Date: 20100518
  Receipt Date: 20100513
  Transmission Date: 20101027
  Serious: Yes (Other)
  Sender: FDA-Public Use
  Company Number: CHPA2010US08462

PATIENT
  Age: 85 Year
  Sex: Female

DRUGS (2)
  1. VOLTAREN [Suspect]
     Indication: CYST
     Dosage: 2 GRAMS, 2, 3 OR 4 TIMES A DAY
     Route: 061
     Dates: start: 20100402
  2. MAGNESIUM [Concomitant]
     Dosage: UNK
     Route: 048

REACTIONS (6)
  - ABASIA [None]
  - APPLICATION SITE PRURITUS [None]
  - APPLICATION SITE RASH [None]
  - ARTHRALGIA [None]
  - CHEST DISCOMFORT [None]
  - OFF LABEL USE [None]
